FAERS Safety Report 9816250 (Version 1)
Quarter: 2014Q1

REPORT INFORMATION
  Report Type: Spontaneous
  Country: US (occurrence: US)
  Receive Date: 20140114
  Receipt Date: 20140114
  Transmission Date: 20141002
  Serious: Yes (Death)
  Sender: FDA-Public Use
  Company Number: US-PFIZER INC-2014007104

PATIENT
  Age: 46 Year
  Sex: Male

DRUGS (7)
  1. FENTANYL [Suspect]
     Route: 062
  2. OXYCODONE HYDROCHLORIDE [Suspect]
  3. ALPRAZOLAM [Suspect]
  4. METHADONE [Suspect]
  5. DIPHENHYDRAMINE [Suspect]
  6. AMPHETAMINE [Suspect]
  7. FLUOXETINE [Suspect]

REACTIONS (1)
  - Drug abuse [Fatal]
